FAERS Safety Report 18160904 (Version 3)
Quarter: 2020Q3

REPORT INFORMATION
  Report Type: Other
  Country: US (occurrence: US)
  Receive Date: 20200818
  Receipt Date: 20200910
  Transmission Date: 20201103
  Serious: Yes (Hospitalization)
  Sender: FDA-Public Use
  Company Number: US-ROCHE-2526903

PATIENT
  Age: 62 Year
  Sex: Male
  Weight: 72.64 kg

DRUGS (1)
  1. ZELBORAF [Suspect]
     Active Substance: VEMURAFENIB
     Indication: THYROID CANCER
     Dosage: TAKE 3 TABLET(S) BY MOUTH TWICE A DAY
     Route: 048

REACTIONS (4)
  - Tracheal neoplasm [Not Recovered/Not Resolved]
  - Blood iron decreased [Recovered/Resolved]
  - Blood calcium decreased [Recovered/Resolved]
  - Haemoptysis [Recovered/Resolved]

NARRATIVE: CASE EVENT DATE: 202004
